FAERS Safety Report 15766794 (Version 9)
Quarter: 2019Q3

REPORT INFORMATION
  Report Type: Report from Study
  Country: US (occurrence: US)
  Receive Date: 20181227
  Receipt Date: 20190905
  Transmission Date: 20191004
  Serious: Yes (Other)
  Sender: FDA-Public Use
  Company Number: US-MALLINCKRODT-T201806722

PATIENT
  Age: 58 Year
  Sex: Male

DRUGS (7)
  1. REPOSITORY CORTICOTROPIN INJECTION [Suspect]
     Active Substance: CORTICOTROPIN
     Indication: POLYMYOSITIS
     Dosage: 80 UNITS/1 ML, 2 TIMES PER WEEK (TUESDAY/FRIDAY)
     Route: 058
     Dates: start: 20180629
  2. PREDNISONE. [Suspect]
     Active Substance: PREDNISONE
     Indication: PRODUCT USED FOR UNKNOWN INDICATION
     Dosage: 5 MG, UNK
     Route: 065
     Dates: start: 1996, end: 2019
  3. PREDNISONE. [Suspect]
     Active Substance: PREDNISONE
     Dosage: 2 MG, UNK
     Route: 065
     Dates: start: 2019, end: 2019
  4. METFORMIN [Suspect]
     Active Substance: METFORMIN HYDROCHLORIDE
     Indication: DIABETES MELLITUS
     Dosage: UNK
     Route: 065
     Dates: start: 201811
  5. RESTORIL [Suspect]
     Active Substance: TEMAZEPAM
     Indication: INSOMNIA
     Dosage: UNK
     Route: 065
  6. REPOSITORY CORTICOTROPIN INJECTION [Suspect]
     Active Substance: CORTICOTROPIN
     Dosage: 80 UNITS/1 ML, 2 TIMES PER WEEK (TUESDAY/FRIDAY)
     Route: 058
  7. PREDNISONE. [Suspect]
     Active Substance: PREDNISONE
     Dosage: 2.5 MG, UNK
     Route: 065
     Dates: start: 2019, end: 2019

REACTIONS (17)
  - Blood glucose decreased [Unknown]
  - Treatment noncompliance [Unknown]
  - Therapeutic product effect incomplete [Unknown]
  - Obesity [Recovering/Resolving]
  - Feeling abnormal [Unknown]
  - Infection [Unknown]
  - Neuropathy peripheral [Recovered/Resolved]
  - Fatigue [Unknown]
  - Dysgeusia [Unknown]
  - Drug ineffective [Unknown]
  - Gastrectomy [Unknown]
  - Muscular weakness [Not Recovered/Not Resolved]
  - Diabetes mellitus [Unknown]
  - Blood creatine phosphokinase increased [Recovering/Resolving]
  - Insomnia [Not Recovered/Not Resolved]
  - Gastric bypass [Unknown]
  - Memory impairment [Unknown]

NARRATIVE: CASE EVENT DATE: 2018
